FAERS Safety Report 4910885-8 (Version None)
Quarter: 2006Q1

REPORT INFORMATION
  Report Type: 
  Country: None (occurrence: None)
  Receive Date: 20060208
  Receipt Date: 20060208
  Transmission Date: 20060701
  Serious: Yes (Hospitalization)
  Sender: FDA-Public Use
  Company Number: None

PATIENT
  Age: 46 Year
  Sex: Male
  Weight: 95.2554 kg

DRUGS (5)
  1. CYCLOBENZAPRINE TOOK 10 TABS [Suspect]
     Indication: BACK PAIN
     Dosage: 10 MG
     Dates: start: 20051016
  2. GEMFIBROZIL [Concomitant]
  3. LOVASTATIN [Concomitant]
  4. IBUPROFEN [Concomitant]
  5. RANITIDINE [Concomitant]

REACTIONS (1)
  - LETHARGY [None]
